FAERS Safety Report 9271122 (Version 1)
Quarter: 2013Q2

REPORT INFORMATION
  Report Type: Report from Study
  Country: CL (occurrence: CL)
  Receive Date: 20130506
  Receipt Date: 20130506
  Transmission Date: 20140414
  Serious: Yes (Death, Life-Threatening, Hospitalization)
  Sender: FDA-Public Use
  Company Number: PHHY2013CL043883

PATIENT
  Age: 72 Year
  Sex: Male

DRUGS (1)
  1. TAREG [Suspect]
     Indication: BLOOD PRESSURE ABNORMAL
     Dosage: 160 MG, UNK
     Dates: start: 200812, end: 201208

REACTIONS (4)
  - Gastric cancer [Fatal]
  - Pancreatic carcinoma [Fatal]
  - Yellow skin [Fatal]
  - Hepatic cancer [Fatal]
